FAERS Safety Report 4997467-7 (Version None)
Quarter: 2006Q2

REPORT INFORMATION
  Report Type: 
  Country: None (occurrence: None)
  Receive Date: 20060509
  Receipt Date: 20060126
  Transmission Date: 20061013
  Serious: Yes (Hospitalization, Other)
  Sender: FDA-Public Use
  Company Number: US-MERCK-0601USA03246

PATIENT
  Age: 52 Year
  Sex: Female

DRUGS (1)
  1. VIOXX [Suspect]
     Route: 048
     Dates: start: 20001101, end: 20010901

REACTIONS (27)
  - ABDOMINAL PAIN [None]
  - ANGINA PECTORIS [None]
  - ANXIETY [None]
  - ARTHRITIS [None]
  - CAROTID ARTERY DISEASE [None]
  - CELLULITIS [None]
  - CEREBROVASCULAR ACCIDENT [None]
  - CHEST PAIN [None]
  - CHOLECYSTITIS [None]
  - CHRONIC OBSTRUCTIVE PULMONARY DISEASE [None]
  - DEHYDRATION [None]
  - DIARRHOEA [None]
  - ENTEROCELE [None]
  - ESSENTIAL HYPERTENSION [None]
  - GALLBLADDER DISORDER [None]
  - GASTRITIS [None]
  - HEADACHE [None]
  - HEMIPLEGIA [None]
  - HYPERTENSION [None]
  - HYPOTHYROIDISM [None]
  - MIGRAINE [None]
  - RECTOCELE [None]
  - STRESS [None]
  - TRANSIENT ISCHAEMIC ATTACK [None]
  - UTERINE DISORDER [None]
  - VAGINAL PROLAPSE [None]
  - VISION BLURRED [None]
